FAERS Safety Report 7956530-9 (Version None)
Quarter: 2011Q4

REPORT INFORMATION
  Report Type: 
  Country: None (occurrence: None)
  Receive Date: 20111205
  Receipt Date: 20111122
  Transmission Date: 20120403
  Serious: Yes (Other)
  Sender: FDA-Public Use
  Company Number: SK-JNJFOC-20080406219

PATIENT
  Sex: Male
  Weight: 99 kg

DRUGS (7)
  1. METHYLPREDNISOLONE [Concomitant]
     Route: 048
     Dates: start: 20060927
  2. ACIDUM FOLICUM [Concomitant]
     Dosage: ALSO REPORTED AS 5 MG/WEEK
     Route: 048
     Dates: start: 20061112
  3. VERAPAMIL HYDROCHLORIDE [Concomitant]
     Route: 048
     Dates: start: 20061106
  4. TARKA [Concomitant]
  5. REMICADE [Suspect]
     Indication: PSORIATIC ARTHROPATHY
     Dosage: THREE INFUSIONS
     Route: 042
     Dates: start: 20061121, end: 20061219
  6. SILYMARINUM [Concomitant]
     Route: 048
     Dates: start: 20061106
  7. METHOTREXATE [Concomitant]
     Indication: PSORIATIC ARTHROPATHY
     Route: 048
     Dates: start: 20061110, end: 20061215

REACTIONS (4)
  - DYSPNOEA [None]
  - INFUSION RELATED REACTION [None]
  - TUBERCULOSIS [None]
  - ERYTHEMA [None]
